FAERS Safety Report 6303197-1 (Version None)
Quarter: 2009Q3

REPORT INFORMATION
  Report Type: 
  Country: None (occurrence: None)
  Receive Date: 20090810
  Receipt Date: 20081216
  Transmission Date: 20100115
  Serious: No
  Sender: FDA-Public Use
  Company Number: A0761131A

PATIENT
  Age: 69 Year
  Sex: Female

DRUGS (13)
  1. PAXIL [Suspect]
     Indication: PAIN
     Route: 048
  2. LYRICA [Suspect]
     Indication: FIBROMYALGIA
     Dosage: 25MG TWICE PER DAY
     Dates: start: 20080101
  3. CYMBALTA [Suspect]
     Indication: FIBROMYALGIA
     Dosage: 60MG TWICE PER DAY
     Dates: start: 20080601
  4. AROMASIN [Suspect]
     Indication: BREAST CANCER
     Dosage: 25MG PER DAY
     Dates: start: 20080601
  5. TOPAMAX [Concomitant]
     Indication: FIBROMYALGIA
     Dosage: 100MG PER DAY
  6. SEROQUEL [Concomitant]
     Dosage: 150MG AT NIGHT
  7. FUROSEMIDE [Concomitant]
  8. DARVOCET-N 100 [Concomitant]
     Dosage: 2TAB PER DAY
  9. METOPROLOL [Concomitant]
     Dosage: 25MG PER DAY
  10. MELOXICAM [Concomitant]
     Dosage: 15MG PER DAY
  11. KLOR-CON [Concomitant]
     Dosage: 10MEQ TWICE PER DAY
  12. SENOKOT [Concomitant]
  13. COLACE [Concomitant]

REACTIONS (3)
  - DRUG INEFFECTIVE [None]
  - HYPOAESTHESIA ORAL [None]
  - TINNITUS [None]
